FAERS Safety Report 13423915 (Version 2)
Quarter: 2017Q2

REPORT INFORMATION
  Report Type: Spontaneous
  Country: CH (occurrence: CH)
  Receive Date: 20170410
  Receipt Date: 20170427
  Transmission Date: 20170830
  Serious: Yes (Other)
  Sender: FDA-Public Use
  Company Number: CH-GILEAD-2017-0266300

PATIENT
  Age: 54 Year
  Sex: Male
  Weight: 88 kg

DRUGS (1)
  1. HARVONI [Suspect]
     Active Substance: LEDIPASVIR\SOFOSBUVIR
     Indication: CHRONIC HEPATITIS C
     Dosage: UNK
     Route: 065
     Dates: start: 20150810, end: 20151119

REACTIONS (6)
  - Hepatic fibrosis [Unknown]
  - Genotype drug resistance test positive [Unknown]
  - Treatment failure [Unknown]
  - Drug ineffective [Unknown]
  - Hepatitis C [Unknown]
  - Off label use [Recovered/Resolved]
